FAERS Safety Report 9373334 (Version 2)
Quarter: 2013Q4

REPORT INFORMATION
  Report Type: Spontaneous
  Country: FR (occurrence: FR)
  Receive Date: 20130627
  Receipt Date: 20131120
  Transmission Date: 20140711
  Serious: Yes (Hospitalization)
  Sender: FDA-Public Use
  Company Number: FR-GLAXOSMITHKLINE-B0901044A

PATIENT
  Sex: Female

DRUGS (6)
  1. REQUIP [Suspect]
     Indication: PARKINSON^S DISEASE
     Dosage: 8MG PER DAY
     Route: 048
     Dates: start: 200810, end: 201305
  2. SINEMET [Suspect]
     Indication: PARKINSON^S DISEASE
     Route: 048
     Dates: start: 201101
  3. MANTADIX [Suspect]
     Indication: PARKINSON^S DISEASE
     Dosage: 3UNIT PER DAY
     Route: 048
     Dates: start: 2009
  4. AZILECT [Suspect]
     Indication: PARKINSON^S DISEASE
     Dosage: 1UNIT PER DAY
     Route: 048
     Dates: start: 2009
  5. LEVODOPA [Concomitant]
     Indication: PARKINSON^S DISEASE
     Route: 065
     Dates: start: 200810, end: 201101
  6. ENTACAPONE [Concomitant]
     Indication: PARKINSON^S DISEASE
     Route: 065
     Dates: start: 200810, end: 201101

REACTIONS (8)
  - Pathological gambling [Recovered/Resolved]
  - Impulsive behaviour [Unknown]
  - Illusion [Unknown]
  - Somnolence [Unknown]
  - Compulsive shopping [Unknown]
  - Anxiety [Unknown]
  - Hallucination [Unknown]
  - Economic problem [Unknown]
